FAERS Safety Report 25909575 (Version 2)
Quarter: 2025Q4

REPORT INFORMATION
  Report Type: Spontaneous
  Country: EU (occurrence: EU)
  Receive Date: 20251011
  Receipt Date: 20251027
  Transmission Date: 20260117
  Serious: Yes (Death, Other)
  Sender: REGENERON
  Company Number: EU-REGENERON PHARMACEUTICALS, INC.-2025-161259

PATIENT
  Age: 66 Year
  Sex: Male

DRUGS (1)
  1. LIBTAYO [Suspect]
     Active Substance: CEMIPLIMAB-RWLC
     Indication: Lung neoplasm malignant
     Dosage: 350 MG, Q3W
     Route: 065
     Dates: start: 20230109, end: 20250113

REACTIONS (3)
  - Cholestasis [Fatal]
  - Malignant neoplasm oligoprogression [Unknown]
  - Arthralgia [Unknown]

NARRATIVE: CASE EVENT DATE: 20250113
